FAERS Safety Report 21711646 (Version 2)
Quarter: 2022Q4

REPORT INFORMATION
  Report Type: Spontaneous
  Country: JP (occurrence: JP)
  Receive Date: 20221212
  Receipt Date: 20221230
  Transmission Date: 20230113
  Serious: Yes (Other)
  Sender: FDA-Public Use
  Company Number: JP-TAKEDA-2022TJP052157

PATIENT
  Age: 14 Year
  Sex: Male

DRUGS (2)
  1. ENTYVIO [Suspect]
     Active Substance: VEDOLIZUMAB
     Indication: Colitis ulcerative
     Dosage: 300 MILLIGRAM, Q8WEEKS
     Route: 041
     Dates: start: 202104, end: 202110
  2. PREDNISOLONE [Concomitant]
     Active Substance: PREDNISOLONE
     Dosage: UNK
     Route: 065

REACTIONS (3)
  - Therapeutic product effect decreased [Unknown]
  - Product administered to patient of inappropriate age [Unknown]
  - Off label use [Unknown]

NARRATIVE: CASE EVENT DATE: 20210401
